FAERS Safety Report 9593650 (Version 2)
Quarter: 2013Q4

REPORT INFORMATION
  Report Type: Report from Study
  Country: FR (occurrence: FR)
  Receive Date: 20131004
  Receipt Date: 20131108
  Transmission Date: 20140711
  Serious: Yes (Other)
  Sender: FDA-Public Use
  Company Number: FR-009507513-1310FRA001307

PATIENT
  Age: 42 Year
  Sex: Female

DRUGS (3)
  1. ISENTRESS [Suspect]
     Dosage: 800 MG, QD
     Route: 048
     Dates: start: 20110615
  2. PREZISTA [Suspect]
     Dosage: 800 MG, QD
     Route: 048
     Dates: start: 20110615
  3. NORVIR [Suspect]
     Dosage: 100 MG, QD
     Route: 048
     Dates: start: 20110615

REACTIONS (2)
  - Abortion spontaneous [Unknown]
  - Maternal exposure during pregnancy [Recovered/Resolved]
